FAERS Safety Report 4399449-5 (Version None)
Quarter: 2004Q3

REPORT INFORMATION
  Report Type: 
  Country: None (occurrence: None)
  Receive Date: 20040712
  Receipt Date: 20040629
  Transmission Date: 20050211
  Serious: Yes (Other)
  Sender: FDA-Public Use
  Company Number: 206314

PATIENT
  Sex: Male

DRUGS (1)
  1. NUTROPIN [Suspect]
     Indication: GROWTH HORMONE DEFICIENCY
     Dosage: 0.3 MG/KG, 1/WEEK
     Dates: start: 20010701

REACTIONS (1)
  - MACULAR DEGENERATION [None]
